FAERS Safety Report 5765498-5 (Version None)
Quarter: 2008Q2

REPORT INFORMATION
  Report Type: 
  Country: None (occurrence: None)
  Receive Date: 20080611
  Receipt Date: 20080610
  Transmission Date: 20081010
  Serious: Yes (Hospitalization)
  Sender: FDA-Public Use
  Company Number: B0524398A

PATIENT
  Age: 12 Year
  Sex: Male
  Weight: 56 kg

DRUGS (5)
  1. ONDANSETRON [Suspect]
     Route: 042
     Dates: start: 20080501, end: 20080509
  2. ISOFLURANE [Concomitant]
     Route: 055
  3. PROPOFOL [Concomitant]
     Route: 042
     Dates: start: 20080509, end: 20080509
  4. LIGNOCAINE [Concomitant]
     Indication: PAIN
  5. FLIXOTIDE [Concomitant]
     Dosage: 100MG PER DAY
     Route: 055

REACTIONS (1)
  - MYOCLONUS [None]
